FAERS Safety Report 7969270-7 (Version None)
Quarter: 2011Q4

REPORT INFORMATION
  Report Type: 
  Country: None (occurrence: None)
  Receive Date: 20111209
  Receipt Date: 20111207
  Transmission Date: 20120403
  Serious: Yes (Life-Threatening, Hospitalization)
  Sender: FDA-Public Use
  Company Number: US-ROCHE-1018620

PATIENT
  Age: 52 Year
  Sex: Male
  Weight: 122.13 kg

DRUGS (21)
  1. DACARBAZINE [Suspect]
     Indication: HODGKIN'S DISEASE
  2. AMARYL [Concomitant]
     Route: 048
  3. ERGOCALCIFEROL [Concomitant]
     Route: 048
  4. VINBLASTINE SULFATE [Suspect]
     Indication: HODGKIN'S DISEASE
  5. FERROUS SULFATE TAB [Concomitant]
     Route: 048
  6. LIDOCAINE [Concomitant]
     Route: 061
  7. LORAZEPAM [Concomitant]
     Route: 048
  8. ZOCOR [Concomitant]
     Route: 048
  9. ASPIRIN [Concomitant]
     Route: 048
  10. NYSTATIN [Concomitant]
     Route: 048
  11. ONDANSETRON [Concomitant]
     Route: 048
  12. AVASTIN [Suspect]
     Indication: HODGKIN'S DISEASE
     Route: 042
     Dates: start: 20110511, end: 20110907
  13. PROVENTIL GENTLEHALER [Concomitant]
  14. BLEOMYCIN SULFATE [Suspect]
     Indication: HODGKIN'S DISEASE
     Dosage: 10 UNITES/M2
  15. DOXORUBICIN HCL [Suspect]
     Indication: HODGKIN'S DISEASE
  16. CHOLECALCIFEROL [Concomitant]
     Route: 048
  17. PRILOSEC [Concomitant]
     Route: 048
  18. SENNA [Concomitant]
  19. FLONASE [Concomitant]
  20. OXYCODONE HCL [Concomitant]
     Route: 048
  21. PROCHLORPERAZINE MALEATE [Concomitant]

REACTIONS (4)
  - FEBRILE NEUTROPENIA [None]
  - RENAL FAILURE [None]
  - SOFT TISSUE NECROSIS [None]
  - INFECTION [None]
